FAERS Safety Report 15351412 (Version 1)
Quarter: 2018Q3

REPORT INFORMATION
  Report Type: Other
  Country: US (occurrence: US)
  Receive Date: 20180905
  Receipt Date: 20180905
  Transmission Date: 20181010
  Serious: Yes (Other)
  Sender: FDA-Public Use
  Company Number: US-ACTELION-A-CH2018-178380

PATIENT
  Age: 33 Year
  Sex: Female

DRUGS (2)
  1. EPOPROSTENOL SODIUM. [Suspect]
     Active Substance: EPOPROSTENOL SODIUM
     Indication: PULMONARY HYPERTENSION
     Route: 042
  2. DOBUTAMINE [Concomitant]
     Active Substance: DOBUTAMINE\DOBUTAMINE HYDROCHLORIDE
     Indication: PULMONARY ARTERIAL PRESSURE INCREASED

REACTIONS (3)
  - Caesarean section [Recovered/Resolved]
  - Hypotension [Unknown]
  - Exposure during pregnancy [Unknown]
